FAERS Safety Report 6610315-4 (Version None)
Quarter: 2010Q1

REPORT INFORMATION
  Report Type: 
  Country: None (occurrence: None)
  Receive Date: 20100302
  Receipt Date: 20100218
  Transmission Date: 20100710
  Serious: Yes (Hospitalization, Other)
  Sender: FDA-Public Use
  Company Number: PHHY2010DE09969

PATIENT
  Age: 14 Year
  Sex: Male

DRUGS (2)
  1. CERTICAN [Suspect]
     Indication: LIVER TRANSPLANT
     Dosage: UNK
  2. PREDNISOLONE [Suspect]
     Dosage: 2.5 MG/ DAY

REACTIONS (3)
  - ARTERIAL THROMBOSIS [None]
  - IMMUNOSUPPRESSANT DRUG LEVEL INCREASED [None]
  - PNEUMONIA INFLUENZAL [None]
